FAERS Safety Report 17692711 (Version 2)
Quarter: 2020Q2

REPORT INFORMATION
  Report Type: Spontaneous
  Country: SV (occurrence: SV)
  Receive Date: 20200422
  Receipt Date: 20200626
  Transmission Date: 20200714
  Serious: Yes (Death)
  Sender: FDA-Public Use
  Company Number: NVSC2020SV107410

PATIENT
  Age: 35 Year
  Sex: Female
  Weight: 56.6 kg

DRUGS (1)
  1. GLIVEC [Suspect]
     Active Substance: IMATINIB MESYLATE
     Indication: CHRONIC MYELOID LEUKAEMIA
     Dosage: 400 MG, QD
     Route: 065
     Dates: start: 201606, end: 201907

REACTIONS (1)
  - Death [Fatal]

NARRATIVE: CASE EVENT DATE: 20200312
